FAERS Safety Report 7943972-0 (Version None)
Quarter: 2011Q4

REPORT INFORMATION
  Report Type: 
  Country: None (occurrence: None)
  Receive Date: 20111128
  Receipt Date: 20111118
  Transmission Date: 20120403
  Serious: Yes (Hospitalization, Congenital Anomaly)
  Sender: FDA-Public Use
  Company Number: US-ROCHE-795287

PATIENT
  Sex: Male
  Weight: 60.382 kg

DRUGS (8)
  1. XELODA [Suspect]
     Indication: COLORECTAL CANCER METASTATIC
     Route: 048
     Dates: start: 20110131, end: 20110530
  2. ALDACTONE [Concomitant]
     Indication: ASCITES
     Route: 048
  3. FERROUS SULFATE TAB [Concomitant]
     Indication: ANAEMIA
     Route: 048
  4. MEGACE [Concomitant]
     Route: 048
  5. MORPHINE [Concomitant]
     Indication: PAIN
     Route: 048
  6. TEMOZOLOMIDE [Suspect]
     Indication: PRODUCT USED FOR UNKNOWN INDICATION
     Route: 048
     Dates: start: 20110131, end: 20110530
  7. INSULIN [Concomitant]
  8. COLACE [Concomitant]
     Indication: CONSTIPATION
     Route: 048

REACTIONS (5)
  - RENAL FAILURE ACUTE [None]
  - DEHYDRATION [None]
  - HEPATIC ENCEPHALOPATHY [None]
  - DISORIENTATION [None]
  - MENTAL STATUS CHANGES [None]
